FAERS Safety Report 8080785-6 (Version None)
Quarter: 2012Q1

REPORT INFORMATION
  Report Type: 
  Country: None (occurrence: None)
  Receive Date: 20120130
  Receipt Date: 20120125
  Transmission Date: 20120608
  Serious: No
  Sender: FDA-Public Use
  Company Number: US-TEVA-319588USA

PATIENT
  Sex: Female
  Weight: 59.02 kg

DRUGS (2)
  1. SEPTRA [Concomitant]
     Indication: URINARY TRACT INFECTION
  2. PLAN B ONE-STEP [Suspect]
     Indication: POST COITAL CONTRACEPTION
     Dosage: 1.5 MILLIGRAM;
     Route: 048
     Dates: start: 20120118, end: 20120118

REACTIONS (4)
  - PELVIC PAIN [None]
  - BREAST SWELLING [None]
  - OFF LABEL USE [None]
  - NAUSEA [None]
